FAERS Safety Report 7868597-7 (Version None)
Quarter: 2011Q4

REPORT INFORMATION
  Report Type: 
  Country: None (occurrence: None)
  Receive Date: 20111028
  Receipt Date: 20101214
  Transmission Date: 20120403
  Serious: No
  Sender: FDA-Public Use
  Company Number: US-AMGEN-USASP2010004734

PATIENT
  Age: 27 Year
  Sex: Female

DRUGS (11)
  1. RELPAX [Concomitant]
  2. ENBREL [Suspect]
     Indication: RHEUMATOID ARTHRITIS
     Dosage: 50 MG, QWK
     Dates: start: 20081115
  3. ENBREL [Suspect]
     Indication: ANKYLOSING SPONDYLITIS
  4. MAXZIDE [Concomitant]
     Dosage: UNK
     Dates: start: 20090504
  5. TOPAMAX [Concomitant]
  6. AZULFIDINE EN 500 MG [Concomitant]
     Dosage: 500 MG, BID
     Dates: start: 20050607
  7. ETHINYL ESTRADIOL W/NORGESTREL [Concomitant]
     Dosage: UNK
  8. NAPROSYN [Concomitant]
     Dosage: 500 MG, BID
     Dates: start: 20050517
  9. CYMBALTA [Concomitant]
     Dosage: 60 MG, QD
     Dates: start: 20060921
  10. FLEXERIL [Concomitant]
     Dosage: UNK UNK, QHS
     Dates: start: 20050517
  11. LYRICA [Concomitant]
     Dosage: UNK

REACTIONS (2)
  - AMENORRHOEA [None]
  - INJECTION SITE PAIN [None]
